FAERS Safety Report 4307933-5 (Version None)
Quarter: 2004Q1

REPORT INFORMATION
  Report Type: 
  Country: None (occurrence: None)
  Receive Date: 20040301
  Receipt Date: 20030113
  Transmission Date: 20041129
  Serious: No
  Sender: FDA-Public Use
  Company Number: US-BRISTOL-MYERS SQUIBB COMPANY-12157020

PATIENT
  Sex: Female
  Weight: 68 kg

DRUGS (2)
  1. GLUCOPHAGE [Suspect]
     Indication: BLOOD GLUCOSE INCREASED
     Route: 048
     Dates: start: 20020301
  2. LEVAQUIN [Concomitant]
     Dates: start: 20020301

REACTIONS (2)
  - ARTHRALGIA [None]
  - ASTHENIA [None]
